FAERS Safety Report 25101726 (Version 1)
Quarter: 2025Q1

REPORT INFORMATION
  Report Type: Spontaneous
  Country: CR (occurrence: CR)
  Receive Date: 20250320
  Receipt Date: 20250320
  Transmission Date: 20250409
  Serious: Yes (Other)
  Sender: MERCK SHARP & DOHME LLC
  Company Number: CR-009507513-2266699

PATIENT
  Age: 28 Year
  Sex: Female

DRUGS (1)
  1. PEMBROLIZUMAB [Suspect]
     Active Substance: PEMBROLIZUMAB
     Indication: Lymphoma
     Route: 065

REACTIONS (4)
  - CSF test abnormal [Unknown]
  - Immune-mediated encephalitis [Unknown]
  - Cognitive disorder [Unknown]
  - Infection [Unknown]
